FAERS Safety Report 8048423-6 (Version None)
Quarter: 2012Q1

REPORT INFORMATION
  Report Type: 
  Country: None (occurrence: None)
  Receive Date: 20120117
  Receipt Date: 20120111
  Transmission Date: 20120608
  Serious: No
  Sender: FDA-Public Use
  Company Number: US-PFIZER INC-2012008824

PATIENT
  Sex: Male

DRUGS (1)
  1. FLECTOR [Suspect]
     Indication: ARTHROPATHY
     Dosage: UNK, EVERY 12 HOURS
     Dates: start: 20111101, end: 20120103

REACTIONS (1)
  - DRUG INEFFECTIVE [None]
